FAERS Safety Report 11864183 (Version 1)
Quarter: 2015Q4

REPORT INFORMATION
  Report Type: Spontaneous
  Country: US (occurrence: US)
  Receive Date: 20151223
  Receipt Date: 20151223
  Transmission Date: 20160305
  Serious: No
  Sender: FDA-Public Use
  Company Number: US-009507513-1512USA005313

PATIENT
  Age: 13 Year
  Sex: Male

DRUGS (1)
  1. FOSAMAX [Suspect]
     Active Substance: ALENDRONATE SODIUM
     Indication: SPINAL COMPRESSION FRACTURE
     Dosage: UNK

REACTIONS (2)
  - Off label use [Unknown]
  - Osteoma [Unknown]
